FAERS Safety Report 19339189 (Version 4)
Quarter: 2021Q3

REPORT INFORMATION
  Report Type: Spontaneous
  Country: US (occurrence: US)
  Receive Date: 20210530
  Receipt Date: 20210905
  Transmission Date: 20211014
  Serious: Yes (Other)
  Sender: FDA-Public Use
  Company Number: US-JNJFOC-20210554858

PATIENT
  Age: 77 Year
  Sex: Female
  Weight: 83.54 kg

DRUGS (15)
  1. SYMBICORT [Concomitant]
     Active Substance: BUDESONIDE\FORMOTEROL FUMARATE DIHYDRATE
  2. RESTASIS [Concomitant]
     Active Substance: CYCLOSPORINE
  3. TRAMADOL. [Concomitant]
     Active Substance: TRAMADOL
  4. METOPROLOL. [Concomitant]
     Active Substance: METOPROLOL
  5. CALTRATE [Concomitant]
     Active Substance: CALCIUM CARBONATE
  6. VITAMIN C [Concomitant]
     Active Substance: ASCORBIC ACID
  7. MONTELUKAST [Concomitant]
     Active Substance: MONTELUKAST SODIUM
  8. LEKOVIT CA [Concomitant]
     Active Substance: CALCIUM CARBONATE\CHOLECALCIFEROL
  9. PREDNISONE. [Concomitant]
     Active Substance: PREDNISONE
  10. PLAVIX [Concomitant]
     Active Substance: CLOPIDOGREL BISULFATE
  11. VITAMIN C FLAVOUR [Concomitant]
  12. TREMFYA [Suspect]
     Active Substance: GUSELKUMAB
     Indication: PSORIATIC ARTHROPATHY
     Route: 058
  13. ASPRIN [Concomitant]
     Active Substance: ASPIRIN
  14. LASIX [Concomitant]
     Active Substance: FUROSEMIDE
  15. SIMVASTATIN. [Concomitant]
     Active Substance: SIMVASTATIN

REACTIONS (4)
  - Psoriatic arthropathy [Unknown]
  - Device malfunction [Unknown]
  - Product dose omission issue [Unknown]
  - Accidental exposure to product [Unknown]

NARRATIVE: CASE EVENT DATE: 20210527
